FAERS Safety Report 5465611-3 (Version None)
Quarter: 2007Q3

REPORT INFORMATION
  Report Type: 
  Country: None (occurrence: None)
  Receive Date: 20070919
  Receipt Date: 20070919
  Transmission Date: 20080115
  Serious: Yes (Other)
  Sender: FDA-Public Use
  Company Number: None

PATIENT
  Age: 62 Year
  Sex: Male
  Weight: 68.9467 kg

DRUGS (5)
  1. ZANTAC 75 [Suspect]
     Indication: GASTROOESOPHAGEAL REFLUX DISEASE
     Dosage: ONE -75 MG- UP TO TWICE DAILY PO  1 TABLET ONCE--NO MORE
     Route: 048
     Dates: start: 20070908, end: 20070908
  2. CLARITIN [Concomitant]
  3. LOPRESSOR [Concomitant]
  4. ASPIRIN [Concomitant]
  5. VITAMIN E [Concomitant]

REACTIONS (2)
  - AMNESIA [None]
  - DISORIENTATION [None]
